FAERS Safety Report 10387385 (Version 1)
Quarter: 2014Q3

REPORT INFORMATION
  Report Type: Report from Study
  Country: BR (occurrence: BR)
  Receive Date: 20140815
  Receipt Date: 20140815
  Transmission Date: 20150326
  Serious: Yes (Hospitalization, Other)
  Sender: FDA-Public Use
  Company Number: BR-ABBVIE-14K-020-1270995-00

PATIENT
  Sex: Female
  Weight: 50 kg

DRUGS (3)
  1. PREDNISONE. [Concomitant]
     Active Substance: PREDNISONE
     Indication: PAIN
     Dosage: 1 TABLET AND HALF
     Route: 048
     Dates: start: 201001
  2. HUMIRA [Suspect]
     Active Substance: ADALIMUMAB
     Indication: RHEUMATOID ARTHRITIS
     Route: 058
     Dates: start: 201106, end: 201303
  3. TECNOMET [Concomitant]
     Indication: ARTHRITIS
     Dosage: 2 TABLETS ON MONDAY AND TUESDAY
     Route: 048
     Dates: start: 201404

REACTIONS (2)
  - Foot fracture [Recovered/Resolved]
  - Surgical failure [Unknown]

NARRATIVE: CASE EVENT DATE: 2012
